FAERS Safety Report 8722262 (Version 3)
Quarter: 2013Q1

REPORT INFORMATION
  Report Type: Spontaneous
  Country: US (occurrence: US)
  Receive Date: 20120814
  Receipt Date: 20130107
  Transmission Date: 20140127
  Serious: No
  Sender: FDA-Public Use
  Company Number: US-009507513-1208USA003785

PATIENT
  Age: 78 Year
  Sex: Female

DRUGS (3)
  1. JANUVIA [Suspect]
     Indication: DIABETES MELLITUS
     Dosage: 50 MG, QD
     Route: 048
     Dates: start: 20120803, end: 20120808
  2. METFORMIN [Concomitant]
  3. ONGLYZA [Concomitant]

REACTIONS (4)
  - Gait disturbance [Recovered/Resolved]
  - Vision blurred [Recovered/Resolved]
  - Balance disorder [Recovering/Resolving]
  - Nausea [Recovered/Resolved]
